FAERS Safety Report 7777993-8 (Version None)
Quarter: 2011Q3

REPORT INFORMATION
  Report Type: 
  Country: None (occurrence: None)
  Receive Date: 20110926
  Receipt Date: 20110915
  Transmission Date: 20111222
  Serious: No
  Sender: FDA-Public Use
  Company Number: US-BIOGENIDEC-2011BI035528

PATIENT
  Age: 40 Year
  Sex: Female

DRUGS (2)
  1. AVONEX [Suspect]
     Indication: MULTIPLE SCLEROSIS
     Route: 030
     Dates: start: 20110128
  2. AVONEX [Suspect]
     Route: 030
     Dates: start: 20070713

REACTIONS (3)
  - INJECTION SITE HAEMORRHAGE [None]
  - PARAESTHESIA [None]
  - NASOPHARYNGITIS [None]
